FAERS Safety Report 5356496-4 (Version None)
Quarter: 2007Q2

REPORT INFORMATION
  Report Type: 
  Country: None (occurrence: None)
  Receive Date: 20070530
  Receipt Date: 20061205
  Transmission Date: 20071010
  Serious: Yes (Hospitalization, Other)
  Sender: FDA-Public Use
  Company Number: US200608005849

PATIENT
  Sex: Male
  Weight: 63.5 kg

DRUGS (3)
  1. ZYPREXA [Suspect]
     Dates: start: 20030101
  2. DEPAKOTE [Concomitant]
  3. INSULIN [Concomitant]

REACTIONS (6)
  - DIABETES MELLITUS [None]
  - DIABETIC COMA [None]
  - DIABETIC KETOACIDOSIS [None]
  - HYPERTENSION [None]
  - HYPOGLYCAEMIA [None]
  - PANCREATITIS [None]
